FAERS Safety Report 12372519 (Version 1)
Quarter: 2016Q2

REPORT INFORMATION
  Report Type: Report from Study
  Country: PT (occurrence: PT)
  Receive Date: 20160516
  Receipt Date: 20160516
  Transmission Date: 20160815
  Serious: Yes (Death, Hospitalization, Other)
  Sender: FDA-Public Use
  Company Number: PT-BAXTER-2016BAX023292

PATIENT
  Age: 43 Year
  Sex: Female

DRUGS (4)
  1. PHYSIONEAL 40 GLUCOSE 2,27% P/V / 22,7 MG/ML [Suspect]
     Active Substance: CALCIUM CHLORIDE\DEXTROSE\MAGNESIUM CHLORIDE\SODIUM CHLORIDE SOLUTION
     Indication: PERITONEAL DIALYSIS
  2. EXTRANEAL 75MG/ML - SACO - 5 UNIDADE(S) - 2000 ML [Suspect]
     Active Substance: CALCIUM CHLORIDE\ICODEXTRIN\MAGNESIUM CHLORIDE\SODIUM CHLORIDE\SODIUM LACTATE
     Indication: CHRONIC KIDNEY DISEASE
     Route: 033
     Dates: start: 2013, end: 20160419
  3. PHYSIONEAL 40 GLUCOSE 2,27% P/V / 22,7 MG/ML [Suspect]
     Active Substance: CALCIUM CHLORIDE\DEXTROSE\MAGNESIUM CHLORIDE\SODIUM CHLORIDE SOLUTION
     Indication: CHRONIC KIDNEY DISEASE
     Route: 033
     Dates: start: 2013, end: 20160419
  4. EXTRANEAL 75MG/ML - SACO - 5 UNIDADE(S) - 2000 ML [Suspect]
     Active Substance: CALCIUM CHLORIDE\ICODEXTRIN\MAGNESIUM CHLORIDE\SODIUM CHLORIDE\SODIUM LACTATE
     Indication: PERITONEAL DIALYSIS

REACTIONS (3)
  - Hypotension [Fatal]
  - Peritonitis [Unknown]
  - Unevaluable event [Unknown]

NARRATIVE: CASE EVENT DATE: 201604
